FAERS Safety Report 5574477-2 (Version None)
Quarter: 2007Q4

REPORT INFORMATION
  Report Type: 
  Country: None (occurrence: None)
  Receive Date: 20071227
  Receipt Date: 20071214
  Transmission Date: 20080405
  Serious: Yes (Death)
  Sender: FDA-Public Use
  Company Number: CH-ROCHE-537504

PATIENT
  Age: 13 Year
  Sex: Male

DRUGS (1)
  1. ROACCUTAN [Suspect]
     Indication: ACNE
     Route: 048
     Dates: start: 20000101, end: 20010101

REACTIONS (4)
  - COMPLETED SUICIDE [None]
  - DEPRESSION [None]
  - LIP DRY [None]
  - VISUAL DISTURBANCE [None]
